FAERS Safety Report 26128525 (Version 1)
Quarter: 2025Q4

REPORT INFORMATION
  Report Type: Report from Study
  Country: US (occurrence: US)
  Receive Date: 20251207
  Receipt Date: 20251207
  Transmission Date: 20260117
  Serious: Yes (Other)
  Sender: JOHNSON AND JOHNSON
  Company Number: US-JNJFOC-20251164551

PATIENT
  Sex: Female

DRUGS (2)
  1. IMAAVY [Suspect]
     Active Substance: NIPOCALIMAB-AAHU
     Indication: Product used for unknown indication
     Route: 042
  2. IMAAVY [Suspect]
     Active Substance: NIPOCALIMAB-AAHU
     Route: 042

REACTIONS (13)
  - Choking [Unknown]
  - Memory impairment [Unknown]
  - Pruritus [Unknown]
  - Fatigue [Unknown]
  - Asthenia [Unknown]
  - Dizziness [Unknown]
  - Asthenopia [Unknown]
  - Sarcoidosis [Unknown]
  - Cough [Unknown]
  - Sinusitis [Unknown]
  - Influenza [Unknown]
  - Headache [Unknown]
  - Pain [Unknown]
